FAERS Safety Report 5636374-3 (Version None)
Quarter: 2008Q1

REPORT INFORMATION
  Report Type: 
  Country: None (occurrence: None)
  Receive Date: 20080225
  Receipt Date: 20071101
  Transmission Date: 20080703
  Serious: No
  Sender: FDA-Public Use
  Company Number: A0691026A

PATIENT
  Age: 90 Year
  Sex: Female

DRUGS (3)
  1. VERAMYST [Suspect]
     Indication: SINUS DISORDER
     Dosage: 1SPR SINGLE DOSE
     Route: 045
     Dates: start: 20071031, end: 20071031
  2. SALINE NASAL [Concomitant]
  3. BENADRYL [Concomitant]

REACTIONS (1)
  - NASAL OEDEMA [None]
